FAERS Safety Report 8664482 (Version 3)
Quarter: 2013Q1

REPORT INFORMATION
  Report Type: Spontaneous
  Country: US (occurrence: US)
  Receive Date: 20120713
  Receipt Date: 20130205
  Transmission Date: 20140127
  Serious: Yes (Other)
  Sender: FDA-Public Use
  Company Number: US-ELI_LILLY_AND_COMPANY-US201101003606

PATIENT
  Sex: Female
  Weight: 99.77 kg

DRUGS (14)
  1. FORTEO [Suspect]
     Indication: OSTEOPOROSIS
     Dosage: 20 UG, QD
     Dates: start: 20101014
  2. FORTEO [Suspect]
     Dosage: 20 UG, QD
     Dates: start: 20101014
  3. FORTEO [Suspect]
     Dosage: 20 UG, QD
     Dates: start: 20101014
  4. FORTEO [Suspect]
     Dosage: 20 UG, QD
     Dates: start: 20101014
  5. NEXIUM [Concomitant]
     Indication: GASTROOESOPHAGEAL REFLUX DISEASE
  6. ATENOLOL [Concomitant]
     Dosage: UNK
  7. ASPIRIN [Concomitant]
     Dosage: UNK
  8. CALCIUM +VIT D [Concomitant]
     Dosage: UNK
  9. MULTIVITAMIN [Concomitant]
     Dosage: UNK
  10. B12 [Concomitant]
     Dosage: UNK
  11. IPRATROPIUM [Concomitant]
     Dosage: UNK
  12. PREDNISONE [Concomitant]
     Indication: PULMONARY FIBROSIS
     Dosage: 5 MG, QD
  13. CETIRIZINE [Concomitant]
     Dosage: 10 MG, QD
  14. EZETIMIBE [Concomitant]

REACTIONS (6)
  - Arterial disorder [Unknown]
  - Tremor [Unknown]
  - Cough [Unknown]
  - Dyspnoea [Unknown]
  - Myalgia [Unknown]
  - Memory impairment [Unknown]
